FAERS Safety Report 7483893-3 (Version None)
Quarter: 2011Q2

REPORT INFORMATION
  Report Type: 
  Country: None (occurrence: None)
  Receive Date: 20110517
  Receipt Date: 20110512
  Transmission Date: 20111010
  Serious: Yes (Other)
  Sender: FDA-Public Use
  Company Number: DE-TEVA-281312GER

PATIENT
  Age: 44 Year
  Sex: Male

DRUGS (3)
  1. CLOPIDOGREL [Suspect]
     Indication: STENT PLACEMENT
     Dates: start: 20090901
  2. SIMVASTATIN [Suspect]
     Indication: DYSLIPIDAEMIA
     Dates: start: 20090901
  3. ASPIRIN [Suspect]
     Indication: ACUTE MYOCARDIAL INFARCTION
     Dates: start: 20090901

REACTIONS (1)
  - HEPATOTOXICITY [None]
